FAERS Safety Report 19979821 (Version 6)
Quarter: 2022Q1

REPORT INFORMATION
  Report Type: Report from Study
  Country: US (occurrence: US)
  Receive Date: 20211021
  Receipt Date: 20220325
  Transmission Date: 20220424
  Serious: No
  Sender: FDA-Public Use
  Company Number: US-NOVARTISTESTPH-NVSC2021US235963

PATIENT
  Sex: Female

DRUGS (3)
  1. PROMACTA [Suspect]
     Active Substance: ELTROMBOPAG OLAMINE
     Indication: Product used for unknown indication
     Dosage: UNK
     Route: 048
  2. PROMACTA [Suspect]
     Active Substance: ELTROMBOPAG OLAMINE
     Dosage: 12.5 MG, QD
     Route: 048
  3. PROMACTA [Suspect]
     Active Substance: ELTROMBOPAG OLAMINE
     Route: 048

REACTIONS (9)
  - Hypersensitivity [Unknown]
  - Burning sensation [Unknown]
  - Memory impairment [Unknown]
  - Rhinorrhoea [Unknown]
  - Pruritus [Unknown]
  - Nasopharyngitis [Unknown]
  - Dizziness [Unknown]
  - Platelet count decreased [Unknown]
  - Platelet count abnormal [Unknown]
